FAERS Safety Report 6569646-9 (Version None)
Quarter: 2010Q1

REPORT INFORMATION
  Report Type: 
  Country: None (occurrence: None)
  Receive Date: 20100203
  Receipt Date: 20100203
  Transmission Date: 20100710
  Serious: Yes (Disabling, Other)
  Sender: FDA-Public Use
  Company Number: None

PATIENT
  Age: 55 Year
  Sex: Male
  Weight: 99.7913 kg

DRUGS (1)
  1. SUBOXONE [Suspect]
     Indication: DRUG DEPENDENCE
     Dosage: ONCE DAILY
     Dates: start: 20090120

REACTIONS (18)
  - ANXIETY [None]
  - BIPOLAR DISORDER [None]
  - COELIAC DISEASE [None]
  - DEPRESSION [None]
  - DISORIENTATION [None]
  - DIZZINESS [None]
  - FEAR [None]
  - HEADACHE [None]
  - HEPATITIS C [None]
  - HYPERHIDROSIS [None]
  - HYPERTENSION [None]
  - INSOMNIA [None]
  - JUDGEMENT IMPAIRED [None]
  - MUSCULOSKELETAL PAIN [None]
  - PANIC DISORDER [None]
  - SOMNOLENCE [None]
  - STRABISMUS [None]
  - VISION BLURRED [None]
